FAERS Safety Report 24714233 (Version 1)
Quarter: 2024Q4

REPORT INFORMATION
  Report Type: Spontaneous
  Country: US (occurrence: None)
  Receive Date: 20241206
  Receipt Date: 20241206
  Transmission Date: 20250114
  Serious: Yes (Other)
  Sender: Public
  Company Number: None

PATIENT
  Age: 66 Year
  Sex: Female
  Weight: 44.45 kg

DRUGS (1)
  1. XHANCE [Suspect]
     Active Substance: FLUTICASONE PROPIONATE
     Dosage: FREQUENCY : TWICE A DAY;?
     Route: 045
     Dates: start: 20241015, end: 20241022

REACTIONS (3)
  - Eye irritation [None]
  - Dry eye [None]
  - Eye pruritus [None]

NARRATIVE: CASE EVENT DATE: 20241022
